FAERS Safety Report 8600352-2 (Version None)
Quarter: 2012Q3

REPORT INFORMATION
  Report Type: 
  Country: None (occurrence: None)
  Receive Date: 20120817
  Receipt Date: 20120810
  Transmission Date: 20120928
  Serious: No
  Sender: FDA-Public Use
  Company Number: US-PFIZER INC-2012192138

PATIENT
  Sex: Female

DRUGS (1)
  1. EFFEXOR XR [Suspect]
     Dosage: UNK

REACTIONS (5)
  - NIGHT SWEATS [None]
  - VOMITING [None]
  - MOOD SWINGS [None]
  - WITHDRAWAL SYNDROME [None]
  - FEAR [None]
